FAERS Safety Report 25341932 (Version 1)
Quarter: 2025Q2

REPORT INFORMATION
  Report Type: Spontaneous
  Country: US (occurrence: US)
  Receive Date: 20250521
  Receipt Date: 20250521
  Transmission Date: 20250717
  Serious: Yes (Other)
  Sender: BIOVITRUM
  Company Number: US-BIOVITRUM-2025-US-006993

PATIENT
  Age: 71 Year
  Sex: Male

DRUGS (6)
  1. VONJO [Suspect]
     Active Substance: PACRITINIB
     Indication: Myelofibrosis
     Route: 048
     Dates: start: 20250418
  2. ADVIL 200 MG [Concomitant]
     Indication: Product used for unknown indication
  3. CVS MELATONIN GUMMIES 1 MG [Concomitant]
     Indication: Product used for unknown indication
  4. LIPITOR [Concomitant]
     Active Substance: ATORVASTATIN CALCIUM
     Indication: Product used for unknown indication
  5. TYLENOL PM EXTRA STRENGTH 500-25 MG [Concomitant]
     Indication: Product used for unknown indication
  6. XYZAL ALLERGY 24 HOUR 5 MG [Concomitant]
     Indication: Product used for unknown indication

REACTIONS (2)
  - Skin cancer [Unknown]
  - Off label use [Not Recovered/Not Resolved]

NARRATIVE: CASE EVENT DATE: 20250418
